FAERS Safety Report 4353315-X (Version None)
Quarter: 2004Q2

REPORT INFORMATION
  Report Type: 
  Country: None (occurrence: None)
  Receive Date: 20040504
  Receipt Date: 20040504
  Transmission Date: 20050107
  Serious: Yes (Death)
  Sender: FDA-Public Use
  Company Number: None

PATIENT
  Sex: Male
  Weight: 81.6475 kg

DRUGS (1)
  1. ZOLOFT [Suspect]
     Indication: DEPRESSION
     Dosage: 4 X DAILY
     Dates: start: 19960401, end: 19961024

REACTIONS (3)
  - ANXIETY [None]
  - COMPLETED SUICIDE [None]
  - THINKING ABNORMAL [None]
